FAERS Safety Report 4264616-8 (Version None)
Quarter: 2004Q1

REPORT INFORMATION
  Report Type: 
  Country: None (occurrence: None)
  Receive Date: 20040102
  Receipt Date: 20031222
  Transmission Date: 20041129
  Serious: Yes (Disabling)
  Sender: FDA-Public Use
  Company Number: 03P-056-0245643-00

PATIENT
  Age: 71 Year
  Sex: Male

DRUGS (6)
  1. ISOPTIN TAB [Suspect]
     Dosage: 240 MG, PER ORAL
     Route: 048
  2. OFLOXACIN [Suspect]
     Indication: BRONCHITIS
     Dosage: PER ORAL
     Route: 048
     Dates: start: 20030602, end: 20030614
  3. DUOVENT [Suspect]
  4. VALACYCLOVIR HCL [Suspect]
     Dosage: PER ORAL
     Route: 048
     Dates: start: 20010101
  5. SERETIDE [Suspect]
     Dosage: INHALATION
  6. LOSARTAN POTASSIUM [Suspect]
     Dosage: PER ORAL
     Route: 048

REACTIONS (6)
  - CONDITION AGGRAVATED [None]
  - GAIT DISTURBANCE [None]
  - MUSCLE CONTRACTIONS INVOLUNTARY [None]
  - MYALGIA [None]
  - PARAESTHESIA [None]
  - TENDON RUPTURE [None]
